FAERS Safety Report 5259751-1 (Version None)
Quarter: 2007Q1

REPORT INFORMATION
  Report Type: 
  Country: None (occurrence: None)
  Receive Date: 20070307
  Receipt Date: 20070222
  Transmission Date: 20070707
  Serious: Yes (Hospitalization)
  Sender: FDA-Public Use
  Company Number: 2007-154898-NL

PATIENT
  Age: 42 Year
  Sex: Female
  Weight: 77 kg

DRUGS (1)
  1. NUVARING [Suspect]
     Indication: CONTRACEPTION
     Dosage: VAGINAL, 21 DAYS
     Route: 067
     Dates: start: 20061212, end: 20070102

REACTIONS (3)
  - HYPERSENSITIVITY [None]
  - LYMPHADENITIS [None]
  - PELVIC PAIN [None]
